FAERS Safety Report 8535885-0 (Version None)
Quarter: 2012Q3

REPORT INFORMATION
  Report Type: 
  Country: None (occurrence: None)
  Receive Date: 20120725
  Receipt Date: 20120719
  Transmission Date: 20120928
  Serious: Yes (Other)
  Sender: FDA-Public Use
  Company Number: PHHY2012BR054212

PATIENT
  Age: 73 Year
  Sex: Female
  Weight: 73 kg

DRUGS (8)
  1. PAROXETINE [Concomitant]
  2. IMATINIB MESYLATE [Suspect]
     Indication: GASTROINTESTINAL STROMAL TUMOUR
     Dosage: 400 MG, UNK
     Dates: start: 20100101
  3. CLONAZEPAM [Concomitant]
  4. CLOMIPRAMINE HCL [Concomitant]
  5. LEVOMEPROMAZINE [Concomitant]
  6. IMATINIB MESYLATE [Suspect]
     Indication: HEPATIC NEOPLASM
  7. OMEPRAZOLE [Concomitant]
  8. LEVOTHYROXINE SODIUM [Concomitant]
     Dosage: 20 MG, UNK

REACTIONS (3)
  - DRUG INEFFECTIVE [None]
  - PULMONARY MASS [None]
  - NEOPLASM PROGRESSION [None]
